FAERS Safety Report 6010164-4 (Version None)
Quarter: 2008Q4

REPORT INFORMATION
  Report Type: 
  Country: None (occurrence: None)
  Receive Date: 20081217
  Receipt Date: 20081217
  Transmission Date: 20090506
  Serious: Yes (Life-Threatening)
  Sender: FDA-Public Use
  Company Number: None

PATIENT
  Age: 84 Year
  Sex: Male
  Weight: 68.0396 kg

DRUGS (1)
  1. FLOMAX [Suspect]
     Indication: URINE FLOW DECREASED
     Dosage: 0.4 MG ONCE DAILY SUMMER OF 03 TO NOV 08
     Dates: start: 20030101, end: 20081101

REACTIONS (5)
  - ANOREXIA [None]
  - CHEST PAIN [None]
  - ILL-DEFINED DISORDER [None]
  - SUICIDAL IDEATION [None]
  - WEIGHT DECREASED [None]
